FAERS Safety Report 8283331-7 (Version None)
Quarter: 2012Q2

REPORT INFORMATION
  Report Type: 
  Country: None (occurrence: None)
  Receive Date: 20120413
  Receipt Date: 20120409
  Transmission Date: 20120825
  Serious: Yes (Other)
  Sender: FDA-Public Use
  Company Number: US-ABBOTT-12P-163-0922854-00

PATIENT
  Age: 21 Year
  Sex: Female

DRUGS (2)
  1. A LOT OF HERBAL MEDICINES [Concomitant]
     Indication: PRODUCT USED FOR UNKNOWN INDICATION
  2. HUMIRA [Suspect]
     Indication: CROHN'S DISEASE
     Dates: start: 20100101

REACTIONS (7)
  - RASH [None]
  - ANAL FISTULA [None]
  - LYMPH NODE PAIN [None]
  - RASH PRURITIC [None]
  - ABSCESS [None]
  - RASH ERYTHEMATOUS [None]
  - LYMPHADENOPATHY [None]
